FAERS Safety Report 6788032-X (Version None)
Quarter: 2010Q2

REPORT INFORMATION
  Report Type: 
  Country: None (occurrence: None)
  Receive Date: 20100623
  Receipt Date: 20071219
  Transmission Date: 20101027
  Serious: No
  Sender: FDA-Public Use
  Company Number: US-PFIZER INC-2007107236

PATIENT
  Sex: Male
  Weight: 63.636 kg

DRUGS (1)
  1. SUTENT [Suspect]
     Indication: GASTROINTESTINAL STROMAL TUMOUR
     Route: 048
     Dates: start: 20071018

REACTIONS (2)
  - DRUG ERUPTION [None]
  - PAIN IN EXTREMITY [None]
